APPROVED DRUG PRODUCT: SODIUM CHLORIDE 0.9% IN PLASTIC CONTAINER
Active Ingredient: SODIUM CHLORIDE
Strength: 900MG/100ML
Dosage Form/Route: SOLUTION;INJECTION
Application: N020178 | Product #001 | TE Code: AP
Applicant: BAXTER HEALTHCARE CORP
Approved: Dec 7, 1992 | RLD: Yes | RS: Yes | Type: RX